FAERS Safety Report 9255146 (Version 1)
Quarter: 2013Q1

REPORT INFORMATION
  Report Type: Spontaneous
  Country: US (occurrence: None)
  Receive Date: 20121212
  Receipt Date: 20121212
  Transmission Date: 20140127
  Serious: No
  Sender: FDA-Public Use
  Company Number: 1209USA000385

PATIENT
  Age: 60 Year
  Sex: Male

DRUGS (14)
  1. VICTRELIS (BOCEPREVIR) CAPSULE [Suspect]
     Indication: HEPATITIS C
     Route: 048
  2. CENTRUM  (MINERALS UNSPECIFIED) (+) VITAMINS (UNSPECIFIED)) (MINERALS (UNSPECIFIED) , VITAMINS (UNSPECIFIED)) [Concomitant]
  3. PEGASYS (PEGINTERFERON ALFA-2A) [Suspect]
  4. PROGRAF (TACROLIMUS) [Concomitant]
  5. VITAMIN B (UNSPECIFIED) [Concomitant]
  6. MILK THISTLE [Concomitant]
  7. CALCIUM (UNSPECIFIED) [Concomitant]
  8. CHOLECALCIFEROL [Concomitant]
  9. ZOLOFT (SERTRALINE HYDROCHLORIDE) [Concomitant]
  10. METHADONE HYDROCHLORIDE [Concomitant]
  11. NOVOLOG (INSULIN ASPART) [Concomitant]
  12. HYDROCODONE [Concomitant]
  13. LEVOXYL (LEVOTHYROXINE SODIUM) [Concomitant]
  14. RIBASPHERE (RIBAVIRIN) [Suspect]

REACTIONS (3)
  - Nausea [None]
  - Vomiting [None]
  - Fatigue [None]
